FAERS Safety Report 22383729 (Version 1)
Quarter: 2023Q2

REPORT INFORMATION
  Report Type: Report from Study
  Country: FR (occurrence: FR)
  Receive Date: 20230530
  Receipt Date: 20230530
  Transmission Date: 20230721
  Serious: Yes (Other)
  Sender: FDA-Public Use
  Company Number: FR-SUN PHARMACEUTICAL INDUSTRIES LTD-2023RR-390082

PATIENT
  Sex: Female

DRUGS (1)
  1. VALACYCLOVIR [Suspect]
     Active Substance: VALACYCLOVIR HYDROCHLORIDE
     Indication: Congenital cytomegalovirus infection
     Dosage: 8 GRAM, DAILY
     Route: 065

REACTIONS (8)
  - Exposure during pregnancy [Unknown]
  - Back pain [Unknown]
  - Gastric disorder [Unknown]
  - Nausea [Unknown]
  - Dizziness [Unknown]
  - Macrocytosis [Unknown]
  - Acute kidney injury [Unknown]
  - Pruritus [Unknown]
